FAERS Safety Report 4833572-3 (Version None)
Quarter: 2005Q4

REPORT INFORMATION
  Report Type: 
  Country: None (occurrence: None)
  Receive Date: 20051121
  Receipt Date: 20050707
  Transmission Date: 20060501
  Serious: Yes (Other)
  Sender: FDA-Public Use
  Company Number: US-MERCK-0507USA01289

PATIENT
  Age: 72 Year
  Sex: Female
  Weight: 70 kg

DRUGS (11)
  1. VIOXX [Suspect]
     Indication: OSTEOARTHRITIS
     Route: 048
     Dates: start: 20000926, end: 20040701
  2. VIOXX [Suspect]
     Route: 048
     Dates: start: 20000926, end: 20040701
  3. PREMARIN [Concomitant]
     Route: 065
     Dates: start: 19700101
  4. ZOCOR [Concomitant]
     Route: 065
  5. NITRO-BID [Concomitant]
     Route: 065
  6. ZOLOFT [Concomitant]
     Route: 065
  7. DYAZIDE [Concomitant]
     Route: 065
     Dates: start: 20030101
  8. ASPIRIN [Concomitant]
     Indication: PROPHYLAXIS
     Route: 065
  9. TYLENOL (CAPLET) [Concomitant]
     Route: 065
  10. IBUPROFEN [Concomitant]
     Route: 065
     Dates: start: 20030101
  11. ALTACE [Concomitant]
     Indication: HYPERTENSION
     Route: 065
     Dates: start: 20040201

REACTIONS (2)
  - CARDIAC DISORDER [None]
  - MYOCARDIAL INFARCTION [None]
